FAERS Safety Report 8551600-9 (Version None)
Quarter: 2012Q3

REPORT INFORMATION
  Report Type: 
  Country: None (occurrence: None)
  Receive Date: 20120730
  Receipt Date: 20120720
  Transmission Date: 20120928
  Serious: Yes (Hospitalization)
  Sender: FDA-Public Use
  Company Number: US-BAYER-2012-073724

PATIENT
  Age: 37 Year
  Sex: Female
  Weight: 86.168 kg

DRUGS (28)
  1. LACTATED RINGER'S [Concomitant]
     Route: 042
  2. REGLAN [Concomitant]
     Indication: PREMEDICATION
     Route: 042
  3. MORPHINE SULFATE [Concomitant]
     Dosage: 3 MG, UNK
     Route: 042
  4. YASMIN [Suspect]
     Indication: POLYCYSTIC OVARIES
  5. ZOFRAN [Concomitant]
     Indication: PREMEDICATION
     Route: 042
  6. FENTANYL [Concomitant]
     Dosage: 350 ?G, UNK
  7. PROPOFOL [Concomitant]
     Dosage: 200 MG, UNK
  8. TORADOL [Concomitant]
     Dosage: 30 MG, UNK
  9. BACITRACIN [Concomitant]
     Indication: ANTIBIOTIC THERAPY
  10. YAZ [Suspect]
  11. VERSED [Concomitant]
     Indication: PREMEDICATION
     Dosage: 2 MG, UNK
     Route: 042
  12. ANCEF [Concomitant]
     Dosage: 500 MG, UNK
  13. DECADRON [Concomitant]
     Dosage: 10 MG, UNK
  14. VICODIN [Concomitant]
     Indication: PAIN
     Dosage: 1-2 Q EVERY 3-4 HRS AS NEEDED
  15. LEVAQUIN [Concomitant]
     Dosage: 1.5 MG/KG
  16. TYLENOL (CAPLET) [Concomitant]
     Indication: PAIN
     Dosage: 1000 MG, PRN
  17. MULTI-VITAMIN [Concomitant]
  18. METFORMIN HYDROCHLORIDE [Concomitant]
     Indication: POLYCYSTIC OVARIES
     Dosage: 500 MG, BID
  19. VIOXX [Concomitant]
     Dosage: 25 MG, DAILY
     Route: 048
  20. SEVOFLURANE [Concomitant]
  21. POLYMYXIN [Concomitant]
     Indication: ANTIBIOTIC THERAPY
  22. PHENERGAN HCL [Concomitant]
     Dosage: 12.5 MG, UNK
     Route: 042
  23. GLUCOPHAGE [Concomitant]
  24. DROSPIRENONE AND ETHINYL ESTRADIOL [Suspect]
  25. ANCEF [Concomitant]
     Indication: PREMEDICATION
     Dosage: 1 G, UNK
     Route: 042
  26. LIDOCAINE [Concomitant]
     Dosage: 100 MG, UNK
  27. IBUPROFEN [Concomitant]
  28. MOTRIN [Concomitant]
     Indication: PAIN
     Dosage: 800 MG, PRN

REACTIONS (2)
  - DEEP VEIN THROMBOSIS [None]
  - THROMBOPHLEBITIS SUPERFICIAL [None]
